FAERS Safety Report 5475989-2 (Version None)
Quarter: 2007Q4

REPORT INFORMATION
  Report Type: 
  Country: None (occurrence: None)
  Receive Date: 20071003
  Receipt Date: 20070925
  Transmission Date: 20080405
  Serious: Yes (Hospitalization)
  Sender: FDA-Public Use
  Company Number: GB-MERCK-0709GBR00127

PATIENT
  Age: 83 Year
  Sex: Female

DRUGS (7)
  1. COZAAR [Suspect]
     Indication: OEDEMA
     Route: 048
     Dates: start: 20070801, end: 20070904
  2. CITALOPRAM [Suspect]
     Indication: AGITATION
     Route: 048
     Dates: start: 20070828, end: 20070904
  3. ASPIRIN [Concomitant]
     Route: 048
  4. GLICLAZIDE [Concomitant]
     Indication: TYPE 2 DIABETES MELLITUS
     Route: 048
  5. LATANOPROST [Concomitant]
     Indication: GLAUCOMA
     Route: 061
  6. METOPROLOL [Concomitant]
     Indication: HYPERTENSION
     Route: 048
  7. SIMVASTATIN [Concomitant]
     Indication: BLOOD CHOLESTEROL INCREASED
     Route: 048

REACTIONS (2)
  - AGITATION [None]
  - CONFUSIONAL STATE [None]
